FAERS Safety Report 5080398-4 (Version None)
Quarter: 2006Q3

REPORT INFORMATION
  Report Type: 
  Country: None (occurrence: None)
  Receive Date: 20060814
  Receipt Date: 20060814
  Transmission Date: 20061208
  Serious: Yes (Other)
  Sender: FDA-Public Use
  Company Number: None

PATIENT
  Sex: Female
  Weight: 80.7403 kg

DRUGS (2)
  1. NIFEDIPINE [Suspect]
     Indication: ANGINA PECTORIS
  2. NIFEDIPINE [Suspect]
     Indication: HYPERTENSION

REACTIONS (4)
  - ASTHENIA [None]
  - FATIGUE [None]
  - PHARMACEUTICAL PRODUCT COMPLAINT [None]
  - VISUAL ACUITY REDUCED [None]
